FAERS Safety Report 20945306 (Version 1)
Quarter: 2022Q2

REPORT INFORMATION
  Report Type: Spontaneous
  Country: IT (occurrence: IT)
  Receive Date: 20220610
  Receipt Date: 20220610
  Transmission Date: 20220720
  Serious: Yes (Hospitalization)
  Sender: FDA-Public Use
  Company Number: None

PATIENT
  Age: 80 Year
  Sex: Female
  Weight: 75 kg

DRUGS (8)
  1. ARSENIC TRIOXIDE [Suspect]
     Active Substance: ARSENIC TRIOXIDE
     Indication: Acute promyelocytic leukaemia
     Dosage: UNIT DOSE: 10 MG, FREQUENCY : 1 DAYS
     Route: 042
     Dates: start: 20220324, end: 20220407
  2. PANTOPRAZOLE [Concomitant]
     Active Substance: PANTOPRAZOLE
  3. SOTROVIMAB [Concomitant]
     Active Substance: SOTROVIMAB
     Indication: COVID-19
     Dosage: UNIT DOSE: 1 DF
     Dates: start: 20220327, end: 20220327
  4. CANRENOATE POTASSIUM [Concomitant]
     Active Substance: CANRENOATE POTASSIUM
  5. TRETINOIN [Concomitant]
     Active Substance: TRETINOIN
     Indication: Acute promyelocytic leukaemia
     Dosage: UNIT DOSE: 80 MG, FREQUENCY : 1 DAYS
     Route: 048
     Dates: start: 20220324, end: 20220426
  6. BISOPROLOL FUMARATE [Concomitant]
     Active Substance: BISOPROLOL FUMARATE
  7. URSODIOL [Concomitant]
     Active Substance: URSODIOL
  8. FUROSEMIDE [Concomitant]
     Active Substance: FUROSEMIDE

REACTIONS (8)
  - Oxygen saturation decreased [Recovered/Resolved]
  - Pyrexia [Recovered/Resolved]
  - Computerised tomogram thorax abnormal [Recovered/Resolved]
  - Metabolic acidosis [Recovered/Resolved]
  - Acute kidney injury [Recovered/Resolved]
  - Persecutory delusion [Recovered/Resolved]
  - Hallucination, visual [Recovered/Resolved]
  - Psychomotor hyperactivity [Recovered/Resolved]

NARRATIVE: CASE EVENT DATE: 20220407
